FAERS Safety Report 8084291-4 (Version None)
Quarter: 2012Q1

REPORT INFORMATION
  Report Type: 
  Country: None (occurrence: None)
  Receive Date: 20120128
  Receipt Date: 20110307
  Transmission Date: 20120608
  Serious: No
  Sender: FDA-Public Use
  Company Number: US-ABBOTT-11P-163-0709794-00

PATIENT
  Age: 44 Year
  Sex: Male

DRUGS (7)
  1. HUMIRA [Suspect]
     Indication: CROHN'S DISEASE
     Dates: start: 20110120
  2. PERCOCET [Concomitant]
     Indication: ABDOMINAL PAIN
     Dosage: 7.5/325MG TID
  3. MULTI-VITAMIN [Concomitant]
     Indication: PRODUCT USED FOR UNKNOWN INDICATION
     Dosage: DAILY
  4. RITALIN [Concomitant]
     Indication: FATIGUE
  5. BACLOFEN [Concomitant]
     Indication: PRODUCT USED FOR UNKNOWN INDICATION
  6. RITALIN [Concomitant]
     Indication: CROHN'S DISEASE
  7. DILAUDID PAIN PUMP AUTOMATED DOSE [Concomitant]
     Indication: PAIN
     Dosage: DAILY

REACTIONS (3)
  - ALOPECIA [None]
  - DRUG INEFFECTIVE [None]
  - PARAESTHESIA [None]
